FAERS Safety Report 7389920-6 (Version None)
Quarter: 2011Q2

REPORT INFORMATION
  Report Type: 
  Country: None (occurrence: None)
  Receive Date: 20110401
  Receipt Date: 20110321
  Transmission Date: 20111010
  Serious: Yes (Other)
  Sender: FDA-Public Use
  Company Number: NL-JNJFOC-20110309023

PATIENT
  Sex: Male
  Weight: 73 kg

DRUGS (5)
  1. INFLIXIMAB, RECOMBINANT [Suspect]
     Indication: RHEUMATOID ARTHRITIS
     Route: 042
  2. DICLOFENAC SODIUM [Concomitant]
     Indication: PAIN
  3. FOLIC ACID [Concomitant]
     Indication: PROPHYLAXIS
  4. METHOTREXATE [Suspect]
     Indication: RHEUMATOID ARTHRITIS
  5. INFLIXIMAB, RECOMBINANT [Suspect]
     Route: 042

REACTIONS (3)
  - DIVERTICULUM [None]
  - ANAL HAEMORRHAGE [None]
  - COLON ADENOMA [None]
